FAERS Safety Report 19264950 (Version 1)
Quarter: 2021Q2

REPORT INFORMATION
  Report Type: Spontaneous
  Country: US (occurrence: US)
  Receive Date: 20210517
  Receipt Date: 20210517
  Transmission Date: 20210717
  Serious: Yes (Other)
  Sender: FDA-Public Use
  Company Number: US-IPSEN BIOPHARMACEUTICALS, INC.-2021-12113

PATIENT
  Sex: Male
  Weight: 84 kg

DRUGS (1)
  1. SOMATULINE DEPOT [Suspect]
     Active Substance: LANREOTIDE ACETATE
     Indication: BENIGN ENDOCRINE NEOPLASM
     Dosage: 120 MG/0.5 ML
     Route: 058

REACTIONS (1)
  - Arthralgia [Not Recovered/Not Resolved]
